FAERS Safety Report 7413189-7 (Version None)
Quarter: 2011Q2

REPORT INFORMATION
  Report Type: 
  Country: None (occurrence: None)
  Receive Date: 20110413
  Receipt Date: 20110411
  Transmission Date: 20111010
  Serious: Yes (Other)
  Sender: FDA-Public Use
  Company Number: GB-PFIZER INC-2011043910

PATIENT
  Age: 41 Year
  Sex: Female

DRUGS (1)
  1. CHAMPIX [Suspect]
     Indication: SMOKING CESSATION THERAPY
     Dosage: UNK DF, 2X/DAY
     Route: 048
     Dates: start: 20101228, end: 20110125

REACTIONS (10)
  - MOUTH ULCERATION [None]
  - SALIVARY HYPERSECRETION [None]
  - WEIGHT DECREASED [None]
  - THROAT TIGHTNESS [None]
  - STRESS [None]
  - SWELLING FACE [None]
  - HEADACHE [None]
  - DYSPHAGIA [None]
  - TONSILLAR ULCER [None]
  - DRY MOUTH [None]
